FAERS Safety Report 23338455 (Version 1)
Quarter: 2023Q4

REPORT INFORMATION
  Report Type: Spontaneous
  Country: US (occurrence: None)
  Receive Date: 20231222
  Receipt Date: 20231222
  Transmission Date: 20240109
  Serious: Yes (Hospitalization)
  Sender: FDA-Public Use
  Company Number: None

PATIENT
  Age: 45 Year
  Sex: Female

DRUGS (17)
  1. OPSUMIT [Suspect]
     Active Substance: MACITENTAN
     Indication: Pulmonary arterial hypertension
     Dosage: FREQUENCY : DAILY;?
     Route: 048
     Dates: start: 20160201
  2. ORENITRAM [Suspect]
     Active Substance: TREPROSTINIL
  3. FUROSEMIDE [Concomitant]
     Active Substance: FUROSEMIDE
  4. SPIRONOLACTONE [Concomitant]
     Active Substance: SPIRONOLACTONE
  5. POTASSIUM CHLORIDE [Concomitant]
     Active Substance: POTASSIUM CHLORIDE
  6. DABIGATRAN [Concomitant]
     Active Substance: DABIGATRAN
  7. MAGNESIUM OXIDE [Concomitant]
     Active Substance: MAGNESIUM OXIDE
  8. CELLCEPT [Concomitant]
     Active Substance: MYCOPHENOLATE MOFETIL
  9. SULFASALAZINE [Concomitant]
     Active Substance: SULFASALAZINE
  10. FERROUS GLUCONATE [Concomitant]
     Active Substance: FERROUS GLUCONATE
  11. MIRALAX [Concomitant]
     Active Substance: POLYETHYLENE GLYCOL 3350
  12. NORCO [Concomitant]
     Active Substance: ACETAMINOPHEN\HYDROCODONE BITARTRATE
  13. HYDROMORPHONE [Concomitant]
     Active Substance: HYDROMORPHONE
  14. NARCAN [Concomitant]
     Active Substance: NALOXONE HYDROCHLORIDE
  15. VITAMINS [Concomitant]
     Active Substance: VITAMINS
  16. ONDANSETRON [Concomitant]
     Active Substance: ONDANSETRON
  17. OMEPRAZOLE [Concomitant]
     Active Substance: OMEPRAZOLE

REACTIONS (4)
  - Dyspnoea exertional [None]
  - Nausea [None]
  - Vomiting [None]
  - Pulmonary hypertension [None]

NARRATIVE: CASE EVENT DATE: 20231103
